FAERS Safety Report 8172676-7 (Version None)
Quarter: 2012Q1

REPORT INFORMATION
  Report Type: 
  Country: None (occurrence: None)
  Receive Date: 20120229
  Receipt Date: 20120215
  Transmission Date: 20120608
  Serious: Yes (Congenital Anomaly)
  Sender: FDA-Public Use
  Company Number: US-RANBAXY-2011US-50102

PATIENT

DRUGS (6)
  1. PREZISTA [Suspect]
     Indication: MATERNAL EXPOSURE DURING PREGNANCY
     Dosage: 800 MG DAILY
     Route: 064
     Dates: start: 20110428
  2. NORVIR [Suspect]
     Dosage: 100 MG/DAY
     Route: 064
     Dates: start: 20110519
  3. ZIDOVUDINE [Suspect]
     Indication: MATERNAL EXPOSURE DURING PREGNANCY
     Dosage: 20 MG/DAY
     Route: 064
     Dates: start: 20110915, end: 20110915
  4. NORVIR [Suspect]
     Indication: MATERNAL EXPOSURE TIMING UNSPECIFIED
     Dosage: 200 MG/DAY
     Route: 064
     Dates: start: 20110428, end: 20110518
  5. COMBIVIR [Suspect]
     Indication: MATERNAL EXPOSURE DURING PREGNANCY
     Dosage: UNK
     Route: 064
     Dates: start: 20110421, end: 20110915
  6. KALETRA [Suspect]
     Indication: MATERNAL EXPOSURE DURING PREGNANCY
     Dosage: UNK
     Route: 064
     Dates: start: 20110421, end: 20110428

REACTIONS (4)
  - FOETAL GROWTH RESTRICTION [None]
  - PREMATURE BABY [None]
  - FOETAL EXPOSURE DURING PREGNANCY [None]
  - MATERNAL DRUGS AFFECTING FOETUS [None]
